FAERS Safety Report 6420229-0 (Version None)
Quarter: 2009Q4

REPORT INFORMATION
  Report Type: 
  Country: None (occurrence: None)
  Receive Date: 20091029
  Receipt Date: 20091021
  Transmission Date: 20100525
  Serious: Yes (Hospitalization)
  Sender: FDA-Public Use
  Company Number: PHHY2009FR45993

PATIENT
  Age: 16 Year

DRUGS (6)
  1. CYCLOSPORINE [Suspect]
     Indication: RENAL TRANSPLANT
     Route: 048
  2. PREDNISOLONE [Suspect]
     Indication: RENAL TRANSPLANT
     Dosage: 300 MG/M2/DAY
  3. PREDNISOLONE [Suspect]
     Dosage: 60 MG/M2 PER DAY
  4. PREDNISOLONE [Suspect]
     Dosage: 2.5 MG/M2/DAY
  5. MYCOPHENOLATE MOFETIL [Suspect]
  6. THYMOGLOBULIN [Concomitant]
     Indication: RENAL TRANSPLANT
     Dosage: 2 MG/KG/DAY

REACTIONS (3)
  - THYROID CANCER [None]
  - THYROID MASS [None]
  - THYROIDECTOMY [None]
